FAERS Safety Report 5832068-X (Version None)
Quarter: 2008Q3

REPORT INFORMATION
  Report Type: 
  Country: None (occurrence: None)
  Receive Date: 20080804
  Receipt Date: 20080729
  Transmission Date: 20090109
  Serious: Yes (Other)
  Sender: FDA-Public Use
  Company Number: GB-ROCHE-578492

PATIENT
  Sex: Male
  Weight: 137.9 kg

DRUGS (10)
  1. ORLISTAT [Suspect]
     Indication: OBESITY
     Route: 048
     Dates: start: 20080410
  2. NITROGLYCERIN [Concomitant]
     Indication: ANGINA PECTORIS
     Dosage: ROUTE REPORTED AS SPRAY
  3. NICORANDIL [Concomitant]
     Indication: ANGINA PECTORIS
     Route: 048
  4. SIMVASTATIN [Concomitant]
     Route: 048
  5. PARACETAMOL [Concomitant]
     Route: 048
  6. ASPIRIN [Concomitant]
     Route: 048
  7. BECLOMETHASONE DIPROPIONATE [Concomitant]
     Dosage: ROUTE REPORTED AS NASAL SPRAY.
  8. BISOPROLOL FUMARATE [Concomitant]
     Indication: HYPERTENSION
     Route: 048
  9. ISOSORBIDE MONONITRATE [Concomitant]
     Indication: HYPERTENSION
     Route: 048
  10. RAMIPRIL [Concomitant]
     Indication: HYPERTENSION
     Route: 048

REACTIONS (1)
  - MULTIPLE MYELOMA [None]
